FAERS Safety Report 10658303 (Version 1)
Quarter: 2014Q4

REPORT INFORMATION
  Report Type: Spontaneous
  Country: US (occurrence: None)
  Receive Date: 20141205
  Receipt Date: 20141205
  Transmission Date: 20150529
  Serious: Yes (Other)
  Sender: FDA-Public Use
  Company Number: USA-2014105584

PATIENT
  Age: 74 Year
  Sex: Male
  Weight: 70.3 kg

DRUGS (10)
  1. CARVEDILOL (CARVEDILOL) [Concomitant]
     Active Substance: CARVEDILOL
  2. COLACE [Concomitant]
     Active Substance: DOCUSATE SODIUM
  3. POMALYST [Suspect]
     Active Substance: POMALIDOMIDE
     Indication: PLASMA CELL MYELOMA
     Dosage: 2 MG, 1 IN 2 D, PO?THERAPY?5/2014- TEMPORARILY INTERRUPTED
     Route: 048
     Dates: start: 201405
  4. MILK OF MAGNESIA (MAGNESIUM HYDROXIDE) [Concomitant]
  5. BACTRIM [Concomitant]
     Active Substance: SULFAMETHOXAZOLE\TRIMETHOPRIM
  6. TRACLEER [Concomitant]
     Active Substance: BOSENTAN\BOSENTAN MONOHYDRATE
  7. DEXAMETHASONE (DEXAMETHASONE) [Concomitant]
     Active Substance: DEXAMETHASONE
  8. TORSEMIDE (TORASEMIDE) [Concomitant]
  9. OXYCONTIN [Concomitant]
     Active Substance: OXYCODONE HYDROCHLORIDE
  10. SENNA [Concomitant]
     Active Substance: SENNA LEAF\SENNOSIDES\SENNOSIDES A AND B

REACTIONS (1)
  - Platelet count decreased [None]

NARRATIVE: CASE EVENT DATE: 20140929
